FAERS Safety Report 21074148 (Version 2)
Quarter: 2022Q3

REPORT INFORMATION
  Report Type: Spontaneous
  Country: BR (occurrence: BR)
  Receive Date: 20220713
  Receipt Date: 20220721
  Transmission Date: 20221027
  Serious: Yes (Other)
  Sender: FDA-Public Use
  Company Number: BR-BoehringerIngelheim-2022-BI-179776

PATIENT
  Sex: Male

DRUGS (1)
  1. ALTEPLASE [Suspect]
     Active Substance: ALTEPLASE
     Indication: Vertebrobasilar stroke
     Route: 065

REACTIONS (3)
  - Brain oedema [Unknown]
  - Brain compression [Unknown]
  - Off label use [Unknown]

NARRATIVE: CASE EVENT DATE: 20220630
